FAERS Safety Report 8504468-0 (Version None)
Quarter: 2012Q3

REPORT INFORMATION
  Report Type: 
  Country: None (occurrence: None)
  Receive Date: 20120711
  Receipt Date: 20120709
  Transmission Date: 20120928
  Serious: Yes (Life-Threatening, Hospitalization, Other)
  Sender: FDA-Public Use
  Company Number: ES-ABBOTT-12P-144-0953806-00

PATIENT
  Age: 55 Year
  Sex: Male

DRUGS (2)
  1. HUMIRA [Suspect]
     Indication: PSORIATIC ARTHROPATHY
     Route: 058
     Dates: end: 20120601
  2. GOLIMUMAB [Suspect]
     Indication: PSORIATIC ARTHROPATHY

REACTIONS (2)
  - GUILLAIN-BARRE SYNDROME [None]
  - DRUG INEFFECTIVE [None]
